FAERS Safety Report 5246417-7 (Version None)
Quarter: 2007Q1

REPORT INFORMATION
  Report Type: 
  Country: None (occurrence: None)
  Receive Date: 20070222
  Receipt Date: 20070222
  Transmission Date: 20070707
  Serious: No
  Sender: FDA-Public Use
  Company Number: None

PATIENT
  Age: 52 Year
  Sex: Female
  Weight: 112.9457 kg

DRUGS (1)
  1. PROVIGIL [Suspect]
     Indication: SLEEP DISORDER
     Dosage: 200 MG   ONCE  PO
     Route: 048
     Dates: start: 20070210, end: 20070220

REACTIONS (4)
  - FATIGUE [None]
  - HYPERSOMNIA [None]
  - PHARMACEUTICAL PRODUCT COUNTERFEIT [None]
  - SOMNOLENCE [None]
